FAERS Safety Report 16445674 (Version 5)
Quarter: 2019Q3

REPORT INFORMATION
  Report Type: Report from Study
  Country: US (occurrence: US)
  Receive Date: 20190618
  Receipt Date: 20190923
  Transmission Date: 20191004
  Serious: Yes (Other)
  Sender: FDA-Public Use
  Company Number: US-B.I. PHARMACEUTICALS,INC./RIDGEFIELD-2019-BI-026546

PATIENT
  Age: 75 Year
  Sex: Male

DRUGS (1)
  1. OFEV [Suspect]
     Active Substance: NINTEDANIB
     Indication: IDIOPATHIC PULMONARY FIBROSIS
     Dosage: TAKE 1 CAPSULE (150 MG) BY MOUTH TWICE A DAY WITH FOOD
     Route: 048
     Dates: start: 20190517

REACTIONS (7)
  - Dyspnoea exertional [Not Recovered/Not Resolved]
  - Insomnia [Unknown]
  - Heart rate decreased [Unknown]
  - Nephrolithiasis [Recovered/Resolved]
  - Cardiac murmur [Recovered/Resolved]
  - Diarrhoea [Not Recovered/Not Resolved]
  - Diarrhoea [Recovered/Resolved]

NARRATIVE: CASE EVENT DATE: 20190623
